FAERS Safety Report 9812070 (Version 1)
Quarter: 2014Q1

REPORT INFORMATION
  Report Type: Spontaneous
  Country: US (occurrence: US)
  Receive Date: 20140111
  Receipt Date: 20140111
  Transmission Date: 20141002
  Serious: Yes (Death)
  Sender: FDA-Public Use
  Company Number: US-ASTRAZENECA-2014SE01384

PATIENT
  Age: 42 Year
  Sex: Male

DRUGS (9)
  1. QUETIAPINE [Suspect]
     Route: 048
  2. MIRTAZAPINE [Suspect]
  3. CARBON MONOXIDE [Suspect]
  4. COCAINE [Suspect]
  5. CITALOPRAM [Suspect]
  6. ETHANOL [Suspect]
  7. PHENOBARBITAL [Suspect]
  8. PHENYTOIN [Suspect]
  9. SMOKE [Suspect]

REACTIONS (2)
  - Toxicity to various agents [Fatal]
  - Environmental exposure [Fatal]
